FAERS Safety Report 6356971-X (Version None)
Quarter: 2009Q3

REPORT INFORMATION
  Report Type: 
  Country: None (occurrence: None)
  Receive Date: 20090915
  Receipt Date: 20090903
  Transmission Date: 20100115
  Serious: Yes (Hospitalization)
  Sender: FDA-Public Use
  Company Number: US-SANOFI-SYNTHELABO-F03200900100

PATIENT
  Age: 53 Year
  Sex: Male
  Weight: 65.8 kg

DRUGS (6)
  1. DOCETAXEL [Suspect]
     Indication: OESOPHAGEAL CARCINOMA
     Route: 042
     Dates: start: 20090403, end: 20090403
  2. DOCETAXEL [Suspect]
     Route: 042
     Dates: start: 20090424, end: 20090424
  3. BEVACIZUMAB [Suspect]
     Indication: OESOPHAGEAL CARCINOMA
     Route: 042
     Dates: start: 20090403, end: 20090403
  4. BEVACIZUMAB [Suspect]
     Route: 042
     Dates: start: 20090424, end: 20090424
  5. OXALIPLATIN [Suspect]
     Indication: OESOPHAGEAL CARCINOMA
     Route: 042
     Dates: start: 20090403, end: 20090403
  6. OXALIPLATIN [Suspect]
     Route: 042
     Dates: start: 20090424, end: 20090424

REACTIONS (9)
  - ABDOMINAL PAIN [None]
  - DECREASED APPETITE [None]
  - DEPRESSION [None]
  - DISEASE PROGRESSION [None]
  - DIZZINESS [None]
  - FAILURE TO THRIVE [None]
  - NAUSEA [None]
  - RASH PRURITIC [None]
  - VOMITING [None]
